FAERS Safety Report 20631996 (Version 1)
Quarter: 2022Q1

REPORT INFORMATION
  Report Type: Spontaneous
  Country: JP (occurrence: JP)
  Receive Date: 20220324
  Receipt Date: 20220324
  Transmission Date: 20220423
  Serious: No
  Sender: FDA-Public Use
  Company Number: JP-MSD-M2022-07585

PATIENT
  Age: 80 Year
  Sex: Female

DRUGS (1)
  1. MOLNUPIRAVIR [Suspect]
     Active Substance: MOLNUPIRAVIR
     Indication: COVID-19 treatment
     Dosage: 400 MILLIGRAM, TWICE A DAY (BID)
     Route: 048
     Dates: start: 202202, end: 2022

REACTIONS (1)
  - Accidental underdose [Unknown]

NARRATIVE: CASE EVENT DATE: 20220201
